FAERS Safety Report 21578439 (Version 1)
Quarter: 2022Q4

REPORT INFORMATION
  Report Type: Spontaneous
  Country: US (occurrence: None)
  Receive Date: 20221110
  Receipt Date: 20221110
  Transmission Date: 20230113
  Serious: Yes (Life-Threatening, Other)
  Sender: FDA-Public Use
  Company Number: None

PATIENT
  Sex: Female

DRUGS (7)
  1. PREDNISONE [Suspect]
     Active Substance: PREDNISONE
     Indication: Renal transplant
     Dosage: FREQUENCY : DAILY;?
     Route: 048
     Dates: start: 20220927
  2. MYCOPHENOLATE MOFETIL [Suspect]
     Active Substance: MYCOPHENOLATE MOFETIL
     Indication: Renal transplant
     Dosage: FREQUENCY : TWICE A DAY;?
     Route: 048
     Dates: start: 20141124
  3. OMEPRAZOLE [Concomitant]
     Active Substance: OMEPRAZOLE
     Dates: start: 20200404
  4. ASPIRIN [Concomitant]
     Active Substance: ASPIRIN
     Dates: start: 20141124
  5. PRAVASTATIN [Concomitant]
     Active Substance: PRAVASTATIN
     Dates: start: 20221015
  6. LOSARTAN [Concomitant]
     Active Substance: LOSARTAN
     Dates: start: 20221015
  7. ASTAGRAF XL [Concomitant]
     Active Substance: TACROLIMUS
     Dates: start: 20150212

REACTIONS (1)
  - Chronic myeloid leukaemia [None]
